FAERS Safety Report 21220939 (Version 2)
Quarter: 2022Q4

REPORT INFORMATION
  Report Type: Spontaneous
  Country: US (occurrence: US)
  Receive Date: 20220817
  Receipt Date: 20221202
  Transmission Date: 20230112
  Serious: No
  Sender: FDA-Public Use
  Company Number: US-GSKCCFUS-Case-01460492_AE-83643

PATIENT
  Sex: Female

DRUGS (3)
  1. TRELEGY ELLIPTA [Suspect]
     Active Substance: FLUTICASONE FUROATE\UMECLIDINIUM BROMIDE\VILANTEROL TRIFENATATE
     Indication: Cough
     Dosage: 00/62.5/25MCG
     Dates: start: 2022
  2. LATANOPROST [Suspect]
     Active Substance: LATANOPROST
     Indication: Product used for unknown indication
     Dosage: UNK
  3. TIMOLOL [Suspect]
     Active Substance: TIMOLOL
     Indication: Product used for unknown indication
     Dosage: UNK

REACTIONS (8)
  - Cough [Unknown]
  - Multiple allergies [Unknown]
  - Nasopharyngitis [Unknown]
  - Intraocular pressure increased [Unknown]
  - Labelled drug-disease interaction issue [Unknown]
  - Prescription drug used without a prescription [Unknown]
  - Product dose omission issue [Unknown]
  - Product use in unapproved indication [Unknown]
